FAERS Safety Report 10815972 (Version 1)
Quarter: 2015Q1

REPORT INFORMATION
  Report Type: Spontaneous
  Country: JP (occurrence: JP)
  Receive Date: 20150218
  Receipt Date: 20150218
  Transmission Date: 20150721
  Serious: Yes (Death)
  Sender: FDA-Public Use
  Company Number: JP-JNJFOC-20141006872

PATIENT
  Sex: Male
  Weight: 56 kg

DRUGS (4)
  1. FENTOS TAPE [Concomitant]
     Active Substance: FENTANYL
     Indication: CANCER PAIN
     Route: 062
     Dates: start: 20140903, end: 20141002
  2. ZYTIGA [Suspect]
     Active Substance: ABIRATERONE ACETATE
     Indication: PROSTATE CANCER
     Route: 048
     Dates: start: 20140905, end: 20140928
  3. GONADORELIN ACETATE [Suspect]
     Active Substance: GONADORELIN ACETATE
     Indication: PROSTATE CANCER
     Route: 065
  4. PREDNISOLONE. [Suspect]
     Active Substance: PREDNISOLONE
     Indication: PROSTATE CANCER
     Route: 048
     Dates: start: 20140905, end: 20140928

REACTIONS (3)
  - Cardiac failure [Fatal]
  - Prostate cancer [Fatal]
  - Respiratory failure [Fatal]
